FAERS Safety Report 14756683 (Version 2)
Quarter: 2018Q2

REPORT INFORMATION
  Report Type: Spontaneous
  Country: BR (occurrence: BR)
  Receive Date: 20180413
  Receipt Date: 20180420
  Transmission Date: 20180711
  Serious: Yes (Other)
  Sender: FDA-Public Use
  Company Number: BR-AMGEN-BRASP2018048654

PATIENT
  Age: 67 Year
  Sex: Female

DRUGS (1)
  1. ENBREL [Suspect]
     Active Substance: ETANERCEPT
     Indication: RHEUMATOID ARTHRITIS
     Dosage: UNK, WEEKLY (EVERY WEDNESDAY)
     Route: 065
     Dates: start: 20180221, end: 20180314

REACTIONS (8)
  - Peripheral swelling [Not Recovered/Not Resolved]
  - Fall [Unknown]
  - Tuberculosis [Unknown]
  - Musculoskeletal stiffness [Not Recovered/Not Resolved]
  - Malaise [Unknown]
  - Urinary tract infection [Not Recovered/Not Resolved]
  - Immune system disorder [Not Recovered/Not Resolved]
  - Joint effusion [Unknown]
